FAERS Safety Report 4828288-3 (Version None)
Quarter: 2005Q4

REPORT INFORMATION
  Report Type: 
  Country: None (occurrence: None)
  Receive Date: 20051114
  Receipt Date: 20051114
  Transmission Date: 20060501
  Serious: Yes (Hospitalization)
  Sender: FDA-Public Use
  Company Number: None

PATIENT
  Age: 43 Year
  Sex: Male
  Weight: 64 kg

DRUGS (5)
  1. ERLOTINIB 150 MG/DAY [Suspect]
     Indication: MESOTHELIOMA
     Dosage: 150MG/DAY  LAST DAY
     Dates: start: 20051019
  2. BEVACIZUMAB  15 MG/M2 [Suspect]
     Indication: MESOTHELIOMA
     Dosage: 963 MG Q 21 DAYS
     Dates: start: 20051107
  3. NEURONTIN [Concomitant]
  4. CLONIDINE [Concomitant]
  5. METHADONE HCL [Concomitant]

REACTIONS (1)
  - PAIN [None]
